FAERS Safety Report 6307722-6 (Version None)
Quarter: 2009Q3

REPORT INFORMATION
  Report Type: 
  Country: None (occurrence: None)
  Receive Date: 20090812
  Receipt Date: 20090812
  Transmission Date: 20100115
  Serious: Yes (Hospitalization)
  Sender: FDA-Public Use
  Company Number: None

PATIENT
  Age: 35 Year
  Sex: Female

DRUGS (15)
  1. BUPROPION HCL [Suspect]
     Indication: DEPRESSION
     Dosage: 300 MG PER DAY ORAL
     Route: 048
     Dates: start: 20040101, end: 20060801
  2. BUPROPION HYDROCHLORIDE [Suspect]
     Indication: DEPRESSION
     Dosage: 150 MG / TWICE PER DAY/ORAL
     Route: 048
     Dates: start: 20090501, end: 20090814
  3. BUPROPION HYDROCHLORIDE [Suspect]
     Indication: DEPRESSION
     Dosage: 300 MG/ PER DAY /ORAL
     Route: 048
     Dates: start: 20090814
  4. LAMOTRIGINE [Suspect]
     Indication: BIPOLAR DISORDER
     Dosage: 100 MG / UNKNOWN / ORAL
     Route: 048
     Dates: start: 20060101, end: 20080101
  5. ZONISAMIDE [Suspect]
  6. DESVENLAFAXINE SUCCINATE (FORMULATION UNKNOWN) (DESVENLAFAXINE SUCCINA [Suspect]
  7. FLUOXETINE HYDROCHLORIDE [Suspect]
  8. DULOXETINE HYDROCHLORIDE [Suspect]
  9. METHYLPHENIDATE HCL [Suspect]
  10. ADDERALL 10 [Concomitant]
  11. ORTHO CYCLEN-28 [Concomitant]
  12. LORAZEPAM [Concomitant]
  13. ALPRAZOLAM [Concomitant]
  14. CLONAZEPAM [Concomitant]
  15. NORETHINDRONE AND ETHINYL ESTRADIOL [Concomitant]

REACTIONS (38)
  - ABNORMAL BEHAVIOUR [None]
  - ACTIVITIES OF DAILY LIVING IMPAIRED [None]
  - ALOPECIA [None]
  - ANXIETY [None]
  - APATHY [None]
  - ARTHROPATHY [None]
  - ASTHENIA [None]
  - BIPOLAR DISORDER [None]
  - BRUXISM [None]
  - CONDITION AGGRAVATED [None]
  - CONFUSIONAL STATE [None]
  - DEPRESSION [None]
  - DISEASE RECURRENCE [None]
  - DISTURBANCE IN ATTENTION [None]
  - DRUG HYPERSENSITIVITY [None]
  - DRUG INEFFECTIVE [None]
  - DRUG PRESCRIBING ERROR [None]
  - DYSPHORIA [None]
  - FATIGUE [None]
  - FEELING ABNORMAL [None]
  - GASTRIC DISORDER [None]
  - GENERAL PHYSICAL HEALTH DETERIORATION [None]
  - HUNGER [None]
  - HYPERHIDROSIS [None]
  - INSOMNIA [None]
  - INTENTIONAL DRUG MISUSE [None]
  - IRRITABILITY [None]
  - LOSS OF EMPLOYMENT [None]
  - MEMORY IMPAIRMENT [None]
  - NECK PAIN [None]
  - OBSESSIVE-COMPULSIVE DISORDER [None]
  - PRODUCT FORMULATION ISSUE [None]
  - PRODUCT SUBSTITUTION ISSUE [None]
  - PRURITUS [None]
  - SENSATION OF HEAVINESS [None]
  - SUICIDAL IDEATION [None]
  - UNEVALUABLE EVENT [None]
  - WRONG TECHNIQUE IN DRUG USAGE PROCESS [None]
